FAERS Safety Report 10677301 (Version 4)
Quarter: 2015Q4

REPORT INFORMATION
  Report Type: Report from Study
  Country: JP (occurrence: JP)
  Receive Date: 20141226
  Receipt Date: 20151204
  Transmission Date: 20160304
  Serious: No
  Sender: FDA-Public Use
  Company Number: JP-MERCK-2011SP025474

PATIENT
  Age: 7 Day
  Sex: Male

DRUGS (6)
  1. DEXTROSE. [Concomitant]
     Active Substance: DEXTROSE
     Indication: HYPOGLYCAEMIA
     Dosage: 100 ML, QD, INCREASE OR DECREASE WITH THE ADVENT OF BLOOD SUGAR LEVEL, DIVIDED DOSE FREQUENCY UNKNOW
     Route: 042
     Dates: start: 20110329, end: 20110424
  2. DIAZOXIDE [Suspect]
     Active Substance: DIAZOXIDE
     Dosage: 5.3 MG, TID
     Route: 048
     Dates: start: 20110404, end: 20110911
  3. DIAZOXIDE [Suspect]
     Active Substance: DIAZOXIDE
     Dosage: 5.3 MG, BID
     Route: 048
     Dates: start: 20110912, end: 20111012
  4. DIAZOXIDE [Suspect]
     Active Substance: DIAZOXIDE
     Indication: HYPOGLYCAEMIA
     Dosage: 3.3 MG, TID
     Route: 048
     Dates: start: 20110401, end: 20110403
  5. DIAZOXIDE [Suspect]
     Active Substance: DIAZOXIDE
     Dosage: 5.3 MG, QD
     Route: 048
     Dates: start: 20111013, end: 20111110
  6. PHENOBAL [Concomitant]
     Active Substance: PHENOBARBITAL
     Indication: SUBARACHNOID HAEMORRHAGE
     Dosage: 10 MG, 1 DAY INTERVAL, QD
     Route: 048
     Dates: start: 20110331, end: 20110715

REACTIONS (5)
  - Blood calcium decreased [Unknown]
  - Rickets [Recovered/Resolved]
  - Blood alkaline phosphatase increased [Unknown]
  - Hypophosphataemia [Unknown]
  - Anaemia [Recovered/Resolved]

NARRATIVE: CASE EVENT DATE: 20110405
